FAERS Safety Report 8334286 (Version 2)
Quarter: 2013Q2

REPORT INFORMATION
  Report Type: Spontaneous
  Country: US (occurrence: None)
  Receive Date: 20111130
  Receipt Date: 20120731
  Transmission Date: 20140414
  Serious: Yes (Hospitalization, Other)
  Sender: FDA-Public Use
  Company Number: US201107004470

PATIENT
  Age: 64 Year
  Sex: Female

DRUGS (16)
  1. BYETTA [Suspect]
     Route: 058
     Dates: start: 2005, end: 200911
  2. PLAVIX (CLOPIDOGREL BISULFATE) (CLOPIDOGREL BISULFATE) [Concomitant]
  3. METFORMIN (METFORMIN) [Concomitant]
  4. NEXIUM (ESOMEPRAZOLE MAGNESIUM) [Concomitant]
  5. LIPITOR (ATORVASTATIN CALCIUM) [Concomitant]
  6. BENICAR (OLMESARTAN MEDOXOMIL) [Concomitant]
  7. HYDROCHLOROTHIAZIDE (HYDROCHLOROTHIAZIDE) [Concomitant]
  8. FERROUS SULFATE (FERROUS SULFATE) [Concomitant]
  9. ASPIRIN (ACETYLSALICYLIC ACID) [Concomitant]
  10. GLYBURIDE (GLIBENCLAMIDE) [Concomitant]
  11. ATENOLOL (ATENOLOL) [Concomitant]
  12. DIAZEPAM  (DIAZEPAM) [Concomitant]
  13. AMBIEN (ZOLPIDEM TARTRATE) [Concomitant]
  14. PROZAC (FLUOXETINE HYDROCHLORIDE) [Concomitant]
  15. LORTAB /00607101/ (HYDROCODONE BITARTRATE, PARACETAMOL) [Concomitant]
  16. PHENERGAN (PROMETHAZINE HYDROCHLORIDE) [Concomitant]

REACTIONS (1)
  - PANCREATITIS [None]
